FAERS Safety Report 17854702 (Version 1)
Quarter: 2020Q2

REPORT INFORMATION
  Report Type: Spontaneous
  Country: ZA (occurrence: ZA)
  Receive Date: 20200603
  Receipt Date: 20200603
  Transmission Date: 20200714
  Serious: Yes (Hospitalization)
  Sender: FDA-Public Use
  Company Number: ZA-MYLANLABS-2020M1053041

PATIENT
  Age: 79 Year
  Sex: Female
  Weight: 70.8 kg

DRUGS (5)
  1. PACLITAXEL. [Concomitant]
     Active Substance: PACLITAXEL
     Indication: BREAST CANCER
     Dosage: 135 MILLIGRAM
     Route: 042
     Dates: start: 20200102
  2. OGIVRI [Suspect]
     Active Substance: TRASTUZUMAB-DKST
     Indication: BREAST CANCER
     Dosage: 440 MILLIGRAM 3/52
     Route: 042
     Dates: start: 20200102
  3. ALEPET [Concomitant]
     Indication: BREAST CANCER
     Dosage: 8 MILLIGRAM
     Route: 042
     Dates: start: 20200102
  4. OGIVRI [Suspect]
     Active Substance: TRASTUZUMAB-DKST
     Dosage: 440 MILLIGRAM, 3/52
     Route: 042
     Dates: start: 20200213, end: 20200213
  5. DEXONA                             /00016001/ [Concomitant]
     Active Substance: DEXAMETHASONE
     Indication: BREAST CANCER
     Dosage: 12 MILLIGRAM
     Route: 042
     Dates: start: 20200102

REACTIONS (6)
  - Chills [Recovered/Resolved]
  - Chest pain [Recovered/Resolved]
  - Flushing [Recovered/Resolved]
  - Hypotension [Recovered/Resolved]
  - Back pain [Recovered/Resolved]
  - Bronchospasm [Recovered/Resolved]

NARRATIVE: CASE EVENT DATE: 20200102
